FAERS Safety Report 12289838 (Version 1)
Quarter: 2016Q2

REPORT INFORMATION
  Report Type: Report from Study
  Country: US (occurrence: US)
  Receive Date: 20160421
  Receipt Date: 20160421
  Transmission Date: 20160815
  Serious: Yes (Hospitalization, Other)
  Sender: FDA-Public Use
  Company Number: US-AMGEN-USASL2016048280

PATIENT
  Age: 50 Year
  Sex: Male

DRUGS (1)
  1. ENBREL [Suspect]
     Active Substance: ETANERCEPT
     Indication: PSORIATIC ARTHROPATHY
     Dosage: 50 MG, QWK
     Route: 065

REACTIONS (5)
  - Pain [Unknown]
  - Herpes zoster [Unknown]
  - Hospitalisation [Recovered/Resolved]
  - Peripheral swelling [Unknown]
  - Pneumonia [Unknown]

NARRATIVE: CASE EVENT DATE: 2015
